FAERS Safety Report 15904347 (Version 1)
Quarter: 2019Q1

REPORT INFORMATION
  Report Type: Spontaneous
  Country: US (occurrence: US)
  Receive Date: 20190204
  Receipt Date: 20190204
  Transmission Date: 20190417
  Serious: No
  Sender: FDA-Public Use
  Company Number: US-TEVA-2019-US-999544

PATIENT
  Sex: Female

DRUGS (2)
  1. TEMAZEPAM. [Suspect]
     Active Substance: TEMAZEPAM
     Indication: INSOMNIA
     Route: 065
  2. RESTORIL [Suspect]
     Active Substance: TEMAZEPAM
     Route: 065

REACTIONS (4)
  - Drug ineffective [Unknown]
  - Product physical issue [Unknown]
  - Wrong technique in product usage process [Unknown]
  - Product substitution issue [Unknown]
